FAERS Safety Report 8263999-1 (Version None)
Quarter: 2012Q2

REPORT INFORMATION
  Report Type: 
  Country: None (occurrence: None)
  Receive Date: 20120406
  Receipt Date: 20120328
  Transmission Date: 20120825
  Serious: No
  Sender: FDA-Public Use
  Company Number: US-BIOGENIDEC-2010BI017534

PATIENT
  Sex: Female

DRUGS (1)
  1. TYSABRI [Suspect]
     Indication: MULTIPLE SCLEROSIS
     Route: 042
     Dates: start: 20090122

REACTIONS (19)
  - CHRONIC OBSTRUCTIVE PULMONARY DISEASE [None]
  - PAIN [None]
  - ASTHENIA [None]
  - EMOTIONAL DISORDER [None]
  - FATIGUE [None]
  - HYPOAESTHESIA [None]
  - MIGRAINE [None]
  - DEPRESSION [None]
  - WEIGHT INCREASED [None]
  - LETHARGY [None]
  - COUGH [None]
  - FEELING HOT [None]
  - RASH [None]
  - MULTIPLE SCLEROSIS RELAPSE [None]
  - RASH MACULAR [None]
  - ANXIETY [None]
  - MULTIPLE ALLERGIES [None]
  - NASOPHARYNGITIS [None]
  - URINARY TRACT INFECTION [None]
